FAERS Safety Report 14422881 (Version 1)
Quarter: 2018Q1

REPORT INFORMATION
  Report Type: Spontaneous
  Country: US (occurrence: US)
  Receive Date: 20180123
  Receipt Date: 20180123
  Transmission Date: 20180509
  Serious: No
  Sender: FDA-Public Use
  Company Number: US-ENDO PHARMACEUTICALS INC-2017-001626

PATIENT
  Sex: Female

DRUGS (2)
  1. ENDOCET [Suspect]
     Active Substance: ACETAMINOPHEN\OXYCODONE HYDROCHLORIDE
     Indication: PAIN
     Dosage: 1 DF, QHS
     Route: 065
  2. ENDOCET [Suspect]
     Active Substance: ACETAMINOPHEN\OXYCODONE HYDROCHLORIDE
     Indication: MENISCUS INJURY

REACTIONS (4)
  - Drug ineffective [Unknown]
  - Sleep disorder due to a general medical condition [Unknown]
  - Adverse event [Unknown]
  - Constipation [Unknown]
